FAERS Safety Report 15580692 (Version 1)
Quarter: 2018Q4

REPORT INFORMATION
  Report Type: Spontaneous
  Country: US (occurrence: US)
  Receive Date: 20181102
  Receipt Date: 20181102
  Transmission Date: 20190205
  Serious: Yes (Life-Threatening, Other)
  Sender: FDA-Public Use
  Company Number: None

PATIENT
  Age: 88 Year
  Sex: Female
  Weight: 40.5 kg

DRUGS (7)
  1. RALOXIFENE. [Concomitant]
     Active Substance: RALOXIFENE
  2. MIRALAX [Concomitant]
     Active Substance: POLYETHYLENE GLYCOL 3350
  3. NUPLAZID [Suspect]
     Active Substance: PIMAVANSERIN TARTRATE
     Indication: DEMENTIA WITH LEWY BODIES
     Dosage: ?          QUANTITY:1 CAPSULE(S);OTHER FREQUENCY:1 PILL AFTR DINNER;?
     Route: 048
     Dates: start: 20181018, end: 20181102
  4. TRAZODONE [Concomitant]
     Active Substance: TRAZODONE HYDROCHLORIDE
  5. AMLODIPINE BESYLATE. [Concomitant]
     Active Substance: AMLODIPINE BESYLATE
  6. ATENOLOL. [Concomitant]
     Active Substance: ATENOLOL
  7. YAGAFEM [Concomitant]

REACTIONS (4)
  - Product availability issue [None]
  - Therapy cessation [None]
  - Product substitution issue [None]
  - Drooling [None]

NARRATIVE: CASE EVENT DATE: 20181029
